FAERS Safety Report 8586628 (Version 3)
Quarter: 2012Q4

REPORT INFORMATION
  Report Type: Report from Study
  Country: FR (occurrence: FR)
  Receive Date: 20120530
  Receipt Date: 20121126
  Transmission Date: 20130627
  Serious: Yes (Other)
  Sender: FDA-Public Use
  Company Number: FR-ROCHE-1072958

PATIENT
  Age: 63 Year
  Sex: Female
  Weight: 83 kg

DRUGS (7)
  1. RITUXIMAB [Suspect]
     Indication: B-CELL LYMPHOMA
     Dosage: date of last dose prior to SAE, 07 Jun 2007
     Route: 042
     Dates: start: 20070111, end: 20070607
  2. RITUXIMAB [Suspect]
     Route: 042
     Dates: start: 20090316, end: 20090509
  3. CYCLOPHOSPHAMIDE [Suspect]
     Indication: B-CELL LYMPHOMA
     Dosage: last dose prior to SAE on 26 Apr 2007
     Route: 042
     Dates: start: 20070111
  4. DOXORUBICIN [Suspect]
     Indication: B-CELL LYMPHOMA
     Dosage: last dose prior to SAE on 26 Apr 2007
     Route: 042
     Dates: start: 20070111
  5. VINCRISTINE [Suspect]
     Indication: B-CELL LYMPHOMA
     Dosage: last dose prior to SAE on 26 Apr 2007
     Route: 042
     Dates: start: 20070111
  6. PREDNISONE [Suspect]
     Indication: B-CELL LYMPHOMA
     Dosage: last dose prior to SAE on 30 Apr 2007
     Route: 042
  7. PREDNISONE [Suspect]
     Route: 048

REACTIONS (1)
  - Breast cancer [Not Recovered/Not Resolved]
